FAERS Safety Report 9403162 (Version 2)
Quarter: 2013Q4

REPORT INFORMATION
  Report Type: Spontaneous
  Country: US (occurrence: None)
  Receive Date: 20130712
  Receipt Date: 20131021
  Transmission Date: 20140711
  Serious: Yes (Hospitalization)
  Sender: FDA-Public Use
  Company Number: 2013US001539

PATIENT
  Age: 83 Year
  Sex: Female
  Weight: 89 kg

DRUGS (26)
  1. ICLUSIG [Suspect]
     Indication: CHRONIC MYELOID LEUKAEMIA
     Route: 048
     Dates: start: 20130420, end: 201304
  2. CITALOPRAM (CITALOPRAM) [Concomitant]
  3. COMPAZINE (PROCHLORPERAZINE MALEATE) [Concomitant]
  4. MECLIZINE (MECLIZINE) [Concomitant]
  5. ADVAIR DISKUS (FLUTICASONE PROPIONATE, SALMETEROL XINAFOATE) [Concomitant]
  6. ALBUTEROL (ALBUTEROL) [Concomitant]
  7. ALLOPURINOL [Concomitant]
  8. ALPRAZOLAM (ALPRAZOLAM) [Concomitant]
  9. ANASPAZ (HYOSCYAMINE SULFATE) [Concomitant]
  10. ASPIRIN (ASPIRIN) [Concomitant]
  11. CARVEDILOL (CARVEDILOL) [Concomitant]
  12. CELEXA (CITALOPRAM HYDROBROMIDE) [Concomitant]
  13. CHOLESTYRAMINE (CHOLESTYRAMINE) [Concomitant]
  14. LASIX (FUROSEMIDE) [Concomitant]
  15. LORTAB (HYDROCODONE BITARTRATE, PARACETAMOL) [Concomitant]
  16. LEVOXYL (LEVOTHYROXINE SODIUM) [Concomitant]
  17. MIRALAX [Concomitant]
  18. MULTIVITAMIN (VITAMIN NOS) [Concomitant]
  19. ONDANSETRON (ONDANSETRON) [Concomitant]
  20. POSTASSIUM (POTASSIUM) [Concomitant]
  21. PROCHLORPERAZINE (PROCHLORPERAZINE) [Concomitant]
  22. PROCTOCREAM-HC (HYDROCORTISIONE ACETATE, PRAMOCAIN HYDROCHLORIDE) [Concomitant]
  23. RISPERDAL (RISPERIDONE) [Concomitant]
  24. ZYRTEC (CETIRIZINE HYDROCHLORIDE) [Concomitant]
  25. GLYBURIDE (GLYBURIDE) [Concomitant]
  26. LISINOPRIL (LISINOPRIL) [Concomitant]

REACTIONS (6)
  - Dehydration [None]
  - Mental status changes [None]
  - Pancreatitis [None]
  - Urinary tract infection [None]
  - Anaemia [None]
  - Haemorrhoidal haemorrhage [None]
